FAERS Safety Report 4816962-4 (Version None)
Quarter: 2005Q4

REPORT INFORMATION
  Report Type: 
  Country: None (occurrence: None)
  Receive Date: 20051101
  Receipt Date: 20050627
  Transmission Date: 20060501
  Serious: Yes (Death, Other)
  Sender: FDA-Public Use
  Company Number: PHFR2005GB02271

PATIENT
  Age: 16 Year
  Sex: Male
  Weight: 70 kg

DRUGS (4)
  1. TEGRETOL [Suspect]
     Indication: CONVULSION
     Dosage: 600 MG, BID
     Route: 048
     Dates: start: 20010101
  2. CLOBAZAM [Suspect]
     Indication: CONVULSION
     Dosage: 10 MG, BID
     Route: 048
     Dates: start: 19970101
  3. RISPERIDONE [Suspect]
     Indication: ABNORMAL BEHAVIOUR
     Dosage: 0.5 MG, BID
     Route: 048
  4. TOPIRAMATE [Concomitant]
     Indication: AGITATION
     Dosage: 50MG/DAY
     Route: 048
     Dates: start: 20050331, end: 20050425

REACTIONS (5)
  - AGGRESSION [None]
  - BLEPHAROPHIMOSIS CONGENITAL [None]
  - CONVULSION [None]
  - EPILEPSY [None]
  - GRAND MAL CONVULSION [None]
